FAERS Safety Report 6213689-1 (Version None)
Quarter: 2009Q2

REPORT INFORMATION
  Report Type: 
  Country: None (occurrence: None)
  Receive Date: 20090603
  Receipt Date: 20090522
  Transmission Date: 20091009
  Serious: Yes (Other)
  Sender: FDA-Public Use
  Company Number: PHHY2009GB16422

PATIENT
  Sex: Male
  Weight: 88 kg

DRUGS (12)
  1. CLOZARIL [Suspect]
     Indication: SCHIZOPHRENIA
     Dosage: 175 MG/DAY
     Route: 048
     Dates: start: 20090319
  2. CLOZARIL [Suspect]
     Indication: MAJOR DEPRESSION
  3. SIMVASTATIN [Concomitant]
     Indication: HYPERCHOLESTEROLAEMIA
     Dosage: 40 MG/DAY
     Route: 048
     Dates: start: 20090106
  4. ASPIRIN [Concomitant]
     Indication: CARDIAC DISORDER
     Dosage: 75 MG/DAY
     Route: 048
     Dates: start: 20090106
  5. ASPIRIN [Concomitant]
     Indication: HYPERTENSION
  6. AMLODIPINE [Concomitant]
     Indication: HYPERTENSION
     Dosage: 5 MG/DAY
     Route: 048
     Dates: start: 20090106
  7. VENLAFAXINE HCL [Concomitant]
     Indication: DEPRESSION
     Dosage: 225 MG/DAY
     Route: 048
     Dates: start: 20090119
  8. MIRTAZAPINE [Concomitant]
     Indication: DEPRESSION
     Dosage: 30 MG/DAY
     Route: 048
     Dates: start: 20090119
  9. PARACETAMOL [Concomitant]
     Indication: ARTHRALGIA
     Dosage: 3 GM/DAY
     Route: 048
     Dates: start: 20090517
  10. LAMOTRIGINE [Concomitant]
     Indication: DEPRESSION
     Dosage: 25 MG/DAY
     Route: 048
     Dates: start: 20090507
  11. AMISULPRIDE [Concomitant]
     Indication: PSYCHOTIC DISORDER
     Dosage: 25 MG/DAY
     Route: 048
     Dates: start: 20090519
  12. HYOSCINE [Concomitant]
     Indication: SALIVARY HYPERSECRETION
     Dosage: 600 MCG/DAY
     Route: 048
     Dates: start: 20090408

REACTIONS (1)
  - PETECHIAE [None]
